FAERS Safety Report 20890812 (Version 2)
Quarter: 2022Q2

REPORT INFORMATION
  Report Type: Spontaneous
  Country: JP (occurrence: JP)
  Receive Date: 20220530
  Receipt Date: 20220620
  Transmission Date: 20220720
  Serious: Yes (Hospitalization, Congenital Anomaly, Other)
  Sender: FDA-Public Use
  Company Number: JP-GLAXOSMITHKLINE-JP2022JPN084289

PATIENT

DRUGS (7)
  1. SOTROVIMAB [Suspect]
     Active Substance: SOTROVIMAB
     Indication: COVID-19
     Dosage: 500 MG
     Route: 064
     Dates: start: 20220204, end: 20220204
  2. LEVOTHYROXINE [Suspect]
     Active Substance: LEVOTHYROXINE
     Indication: Hypothyroidism
     Dosage: 75 ?G/DAY
     Route: 064
  3. MAGNESIUM OXIDE [Suspect]
     Active Substance: MAGNESIUM OXIDE
     Indication: Constipation
     Dosage: 990 MG/DAY
     Route: 064
     Dates: start: 20211209
  4. CALONAL [Suspect]
     Active Substance: ACETAMINOPHEN
     Indication: Pyrexia
     Dosage: 400 MG/DAY
     Route: 064
     Dates: start: 20220204, end: 20220403
  5. FERROUS FUMARATE [Suspect]
     Active Substance: FERROUS FUMARATE
     Indication: Anaemia
     Dosage: 100 MG
     Route: 064
     Dates: start: 20220225, end: 20220310
  6. KAYTWO N INTRAVENOUS INJECTION [Concomitant]
     Indication: Vitamin supplementation
     Dosage: 1 MG
     Route: 042
     Dates: start: 20220328, end: 20220328
  7. KAYTWO SYRUP [Concomitant]
     Indication: Vitamin supplementation
     Dosage: 1 MG
     Dates: start: 20220502

REACTIONS (4)
  - Neonatal respiratory distress syndrome [Unknown]
  - Trisomy 21 [Unknown]
  - Hypoglycaemia [Recovered/Resolved]
  - Foetal exposure during pregnancy [Unknown]
